FAERS Safety Report 6135975-6 (Version None)
Quarter: 2009Q1

REPORT INFORMATION
  Report Type: 
  Country: None (occurrence: None)
  Receive Date: 20090329
  Receipt Date: 20080808
  Transmission Date: 20090719
  Serious: No
  Sender: FDA-Public Use
  Company Number: US-BAUSCH-2008BL003487

PATIENT
  Age: 78 Year
  Sex: Male

DRUGS (5)
  1. LOTEMAX [Suspect]
     Indication: CONJUNCTIVITIS
     Route: 047
     Dates: start: 20080805, end: 20080801
  2. LOTEMAX [Suspect]
     Indication: EYE INFECTION
     Route: 047
     Dates: start: 20080805, end: 20080801
  3. ALPHAGAN [Concomitant]
     Indication: GLAUCOMA
     Route: 047
     Dates: start: 20080201
  4. COSOPT [Concomitant]
     Indication: GLAUCOMA
     Route: 047
     Dates: start: 20080201
  5. LIQUID TEARS [Concomitant]
     Indication: KERATOCONJUNCTIVITIS SICCA
     Route: 047

REACTIONS (1)
  - DRUG INEFFECTIVE [None]
